FAERS Safety Report 10495196 (Version 1)
Quarter: 2014Q4

REPORT INFORMATION
  Report Type: Spontaneous
  Country: US (occurrence: None)
  Receive Date: 20141001
  Receipt Date: 20141001
  Transmission Date: 20150528
  Serious: Yes (Hospitalization)
  Sender: FDA-Public Use
  Company Number: VAL_03443_2014

PATIENT
  Sex: Female

DRUGS (13)
  1. SENSIPAR [Concomitant]
     Active Substance: CINACALCET HYDROCHLORIDE
  2. PROPANOLOL [Concomitant]
     Active Substance: PROPRANOLOL HYDROCHLORIDE
  3. RENVELA [Concomitant]
     Active Substance: SEVELAMER CARBONATE
  4. TACROLIMUS. [Concomitant]
     Active Substance: TACROLIMUS
  5. NORVASC [Concomitant]
     Active Substance: AMLODIPINE BESYLATE
  6. IRON [Concomitant]
     Active Substance: IRON
  7. PREVACID [Concomitant]
     Active Substance: LANSOPRAZOLE
  8. NEPHRO-VITE [Concomitant]
  9. MULTIVITAMINS [Concomitant]
     Active Substance: VITAMINS
  10. NUTROPIN AQ [Suspect]
     Active Substance: SOMATROPIN
     Indication: RENAL FAILURE
  11. DUOCAL [Concomitant]
  12. CALCITROL [Suspect]
     Active Substance: CALCITRIOL
     Indication: PRODUCT USED FOR UNKNOWN INDICATION
     Route: 048
  13. EPOGEN [Concomitant]
     Active Substance: ERYTHROPOIETIN

REACTIONS (10)
  - Bacillus infection [None]
  - Blood phosphorus abnormal [None]
  - Muscle spasms [None]
  - Hypotension [None]
  - Vomiting [None]
  - Hypertension [None]
  - Viral infection [None]
  - Weight decreased [None]
  - Hypokalaemia [None]
  - Anaemia [None]
